FAERS Safety Report 4604129-4 (Version None)
Quarter: 2005Q1

REPORT INFORMATION
  Report Type: 
  Country: None (occurrence: None)
  Receive Date: 20050309
  Receipt Date: 20050309
  Transmission Date: 20050727
  Serious: Yes (Hospitalization, Other)
  Sender: FDA-Public Use
  Company Number: None

PATIENT
  Age: 93 Year
  Sex: Female

DRUGS (12)
  1. ASPIRIN [Suspect]
     Indication: ATRIAL FIBRILLATION
     Dosage: 81 MG PO DAILY [CHRONIC]
     Route: 048
  2. BEXTRA [Suspect]
     Indication: OSTEOPOROSIS
     Dosage: 10 MG PO DAILY [CHRONIC ]
     Route: 048
  3. HEMOCYTE [Concomitant]
  4. RANITIDINE [Concomitant]
  5. KEFLEX [Concomitant]
  6. MEGACE [Concomitant]
  7. PROZAC [Concomitant]
  8. LASIX [Concomitant]
  9. POTASSIUM CHLORIDE [Concomitant]
  10. SEROQUEL [Concomitant]
  11. NORCO [Concomitant]
  12. CIPROFLOXACIN HCL [Concomitant]

REACTIONS (2)
  - EROSIVE OESOPHAGITIS [None]
  - UPPER GASTROINTESTINAL HAEMORRHAGE [None]
